FAERS Safety Report 13738700 (Version 1)
Quarter: 2017Q3

REPORT INFORMATION
  Report Type: Spontaneous
  Country: IT (occurrence: IT)
  Receive Date: 20170710
  Receipt Date: 20170710
  Transmission Date: 20171127
  Serious: Yes (Other)
  Sender: FDA-Public Use
  Company Number: IT-SAOL THERAPEUTICS-2017SAO00438

PATIENT
  Sex: Female

DRUGS (2)
  1. BACLOFEN. [Suspect]
     Active Substance: BACLOFEN
     Indication: MUSCLE SPASTICITY
     Dosage: 2076.5 ?G, \DAY
     Route: 037
     Dates: start: 20170203
  2. BACLOFEN. [Suspect]
     Active Substance: BACLOFEN
     Dosage: 1100 ?G, \DAY

REACTIONS (2)
  - Device failure [Unknown]
  - Therapeutic response decreased [Unknown]

NARRATIVE: CASE EVENT DATE: 20170131
